FAERS Safety Report 7793094-7 (Version None)
Quarter: 2011Q4

REPORT INFORMATION
  Report Type: 
  Country: None (occurrence: None)
  Receive Date: 20111003
  Receipt Date: 20110921
  Transmission Date: 20120403
  Serious: Yes (Hospitalization, Other)
  Sender: FDA-Public Use
  Company Number: US-BAYER-2010-003141

PATIENT
  Age: 37 Year
  Sex: Female
  Weight: 65.76 kg

DRUGS (13)
  1. LISINOPRIL [Concomitant]
  2. EXCEDRIN (MIGRAINE) [Concomitant]
  3. DIPHENOXYLATE HCL + ATROPINE SULFATE [Concomitant]
  4. YASMIN [Suspect]
     Indication: PREMENSTRUAL SYNDROME
     Dosage: UNK
     Dates: start: 20060101, end: 20071201
  5. ACETAMINOPHEN AND HYDROCODONE BITARTRATE [Concomitant]
  6. YASMIN [Suspect]
  7. YAZ [Suspect]
     Indication: PREMENSTRUAL SYNDROME
     Dosage: UNK
     Route: 048
     Dates: start: 20060101
  8. YAZ [Suspect]
     Dosage: UNK
     Dates: start: 20071112, end: 20071217
  9. HYDROCHLOROTHIAZIDE [Concomitant]
  10. SULFAMETHOXAZOLE AND TRIMETHOPRIM [Concomitant]
  11. PROMETHAZINE [Concomitant]
  12. TRAMADOL HCL [Concomitant]
  13. LORTAB [Concomitant]

REACTIONS (5)
  - CHOLECYSTECTOMY [None]
  - PAIN [None]
  - CHOLECYSTITIS CHRONIC [None]
  - BLADDER OPERATION [None]
  - RADICAL HYSTERECTOMY [None]
